FAERS Safety Report 25578381 (Version 1)
Quarter: 2025Q3

REPORT INFORMATION
  Report Type: Spontaneous
  Country: US (occurrence: US)
  Receive Date: 20250718
  Receipt Date: 20250718
  Transmission Date: 20251020
  Serious: Yes (Other)
  Sender: AMGEN
  Company Number: US-AMGEN-USASP2025137660

PATIENT
  Age: 37 Year
  Sex: Female

DRUGS (4)
  1. PREDNISONE [Suspect]
     Active Substance: PREDNISONE
     Indication: Pericarditis
     Route: 065
     Dates: start: 202403
  2. RILONACEPT [Concomitant]
     Active Substance: RILONACEPT
     Indication: Pericarditis
     Route: 065
     Dates: start: 202212, end: 202303
  3. RILONACEPT [Concomitant]
     Active Substance: RILONACEPT
     Route: 065
     Dates: start: 202303, end: 202407
  4. TRIAMCINOLONE [Concomitant]
     Active Substance: TRIAMCINOLONE
     Dates: start: 2015, end: 2024

REACTIONS (2)
  - Pericardial fibrosis [Recovered/Resolved]
  - Off label use [Unknown]

NARRATIVE: CASE EVENT DATE: 20240501
